FAERS Safety Report 8710029 (Version 7)
Quarter: 2012Q4

REPORT INFORMATION
  Report Type: 
  Country: JP (occurrence: JP)
  Receive Date: 20120806
  Receipt Date: 20120925
  Transmission Date: 20130627
  Serious: Yes (Life-Threatening, Hospitalization)
  Sender: FDA-Public Use
  Company Number: JP-ABBOTT-12P-087-0963775-00

PATIENT
  Age: 67 Year
  Sex: Male
  Weight: 65.5 kg

DRUGS (25)
  1. CLARITH [Suspect]
     Indication: UPPER RESPIRATORY TRACT INFECTION
     Route: 048
     Dates: start: 20100718, end: 20100727
  2. UNSPECIFIED INGREDIENT [Suspect]
     Indication: UPPER RESPIRATORY TRACT INFECTION
     Dosage: combination granule
     Route: 048
     Dates: start: 20100718, end: 20100727
  3. CARDENALIN [Suspect]
     Indication: HYPERTENSION
     Route: 048
     Dates: end: 20100727
  4. CARDENALIN [Suspect]
     Indication: PROPHYLAXIS
  5. APRINDINE [Suspect]
     Indication: ATRIAL FIBRILLATION
     Route: 048
     Dates: end: 20100727
  6. PARIET [Suspect]
     Indication: DRUG THERAPY
     Route: 048
  7. LOXONIN [Suspect]
     Indication: LUMBAR SPINAL STENOSIS
     Route: 048
     Dates: end: 20100727
  8. ALDOMET [Suspect]
     Indication: HYPERTENSION
     Route: 048
     Dates: end: 20100727
  9. VOGLIBOSE [Suspect]
     Indication: DIABETES MELLITUS
     Route: 048
     Dates: end: 20100727
  10. LASIX [Suspect]
     Indication: RENAL FAILURE CHRONIC
     Route: 048
     Dates: end: 20100727
  11. NSAID^S [Concomitant]
     Indication: PRODUCT USED FOR UNKNOWN INDICATION
  12. PREDONINE [Concomitant]
     Indication: LUMBAR SPINAL STENOSIS
     Route: 048
  13. ATELEC [Concomitant]
     Indication: HYPERTENSION
     Route: 048
     Dates: end: 20100727
  14. OLMETEC [Concomitant]
     Indication: HYPERTENSION
     Route: 048
     Dates: end: 20100727
  15. WARFARIN [Concomitant]
     Indication: ATRIAL FIBRILLATION
     Route: 048
     Dates: end: 20100727
  16. KALIAID [Concomitant]
     Indication: RENAL FAILURE CHRONIC
  17. OPALMON [Concomitant]
     Indication: LUMBAR SPINAL STENOSIS
     Route: 048
     Dates: end: 20100727
  18. HARNAL [Concomitant]
     Indication: BENIGN PROSTATIC HYPERPLASIA
     Route: 048
     Dates: end: 20100727
  19. CERNILTON [Concomitant]
     Indication: BENIGN PROSTATIC HYPERPLASIA
     Route: 048
     Dates: end: 20100727
  20. PRECIPITATED CALCIUM CARBONATE [Concomitant]
     Indication: RENAL FAILURE CHRONIC
     Route: 048
     Dates: end: 20100727
  21. FOSRENOL [Concomitant]
     Indication: RENAL FAILURE CHRONIC
     Route: 048
     Dates: end: 20100727
  22. CHOLEBINE [Concomitant]
     Indication: RENAL FAILURE CHRONIC
     Route: 048
     Dates: end: 20100727
  23. MEDICON [Concomitant]
     Indication: UPPER RESPIRATORY TRACT INFECTION
     Route: 048
     Dates: start: 20100718, end: 20100727
  24. MUCOSOLVAN [Concomitant]
     Indication: UPPER RESPIRATORY TRACT INFECTION
     Route: 048
     Dates: start: 20100718, end: 20100727
  25. DASEN [Concomitant]
     Indication: UPPER RESPIRATORY TRACT INFECTION
     Route: 048
     Dates: start: 20100718, end: 20100727

REACTIONS (6)
  - Agranulocytosis [Recovered/Resolved]
  - Pancytopenia [Recovered/Resolved]
  - Large intestine perforation [Recovered/Resolved]
  - Septic shock [Recovered/Resolved]
  - Cardio-respiratory arrest [Recovered/Resolved]
  - Pneumonia [Recovered/Resolved]
